FAERS Safety Report 6312676-2 (Version None)
Quarter: 2009Q3

REPORT INFORMATION
  Report Type: 
  Country: None (occurrence: None)
  Receive Date: 20090818
  Receipt Date: 20090811
  Transmission Date: 20100115
  Serious: Yes (Life-Threatening)
  Sender: FDA-Public Use
  Company Number: JP-SP-2009-03207

PATIENT
  Age: 76 Year
  Sex: Female

DRUGS (8)
  1. IMMUCYST [Suspect]
     Indication: MALIGNANT NEOPLASM OF RENAL PELVIS
     Route: 050
     Dates: start: 20090612, end: 20090707
  2. IMMUCYST [Suspect]
     Route: 050
     Dates: start: 20090612, end: 20090707
  3. NICORANDIL [Concomitant]
  4. GLIMEPIRIDE [Concomitant]
  5. MOSAPRIDE CITRATE [Concomitant]
     Dates: end: 20090716
  6. SODIUM AZULENE SULFONATE_L-GLUTAMINE [Concomitant]
  7. MAGNESIUM OXIDE [Concomitant]
  8. LEVOFLOXACIN [Concomitant]
     Dates: start: 20090716, end: 20090726

REACTIONS (5)
  - DISSEMINATED TUBERCULOSIS [None]
  - HEPATOSPLENOMEGALY [None]
  - LIVER DISORDER [None]
  - OFF LABEL USE [None]
  - PYREXIA [None]
